FAERS Safety Report 7029691-6 (Version None)
Quarter: 2010Q4

REPORT INFORMATION
  Report Type: 
  Country: None (occurrence: None)
  Receive Date: 20101005
  Receipt Date: 20101005
  Transmission Date: 20110411
  Serious: Yes (Life-Threatening)
  Sender: FDA-Public Use
  Company Number: None

PATIENT
  Age: 68 Year
  Sex: Female
  Weight: 56.6996 kg

DRUGS (2)
  1. PLAVIX [Suspect]
     Indication: HYPOAESTHESIA
     Dosage: 1 A DAY 75MG
     Dates: start: 20100310
  2. PLAVIX [Suspect]
     Indication: VASCULAR OCCLUSION
     Dosage: 1 A DAY 75MG
     Dates: start: 20100310

REACTIONS (5)
  - DIZZINESS [None]
  - FEELING ABNORMAL [None]
  - FEELING HOT [None]
  - HYPOAESTHESIA [None]
  - MUSCULOSKELETAL DISORDER [None]
